FAERS Safety Report 20356162 (Version 4)
Quarter: 2022Q2

REPORT INFORMATION
  Report Type: Report from Study
  Country: BR (occurrence: BR)
  Receive Date: 20220120
  Receipt Date: 20220414
  Transmission Date: 20220721
  Serious: No
  Sender: FDA-Public Use
  Company Number: BR-NOVARTISPH-NVSC2022BR009552

PATIENT
  Age: 55 Year
  Sex: Female

DRUGS (3)
  1. COSENTYX [Suspect]
     Active Substance: SECUKINUMAB
     Indication: Psoriasis
     Dosage: 300 MG, QW
     Route: 065
     Dates: start: 202112
  2. COSENTYX [Suspect]
     Active Substance: SECUKINUMAB
     Dosage: 300 MG, UNKNOWN
     Route: 065
     Dates: start: 20211209
  3. COSENTYX [Suspect]
     Active Substance: SECUKINUMAB
     Dosage: 300 MG, UNKNOWN
     Route: 065
     Dates: start: 20220106

REACTIONS (20)
  - Skin haemorrhage [Unknown]
  - Psoriasis [Unknown]
  - Skin fissures [Unknown]
  - Skin exfoliation [Recovering/Resolving]
  - Nail psoriasis [Unknown]
  - Foot deformity [Unknown]
  - Nail injury [Unknown]
  - Pain [Unknown]
  - Malaise [Unknown]
  - Onychomycosis [Recovering/Resolving]
  - Swelling [Recovering/Resolving]
  - Ingrowing nail [Recovering/Resolving]
  - Onychoclasis [Recovered/Resolved]
  - Nail discolouration [Recovered/Resolved]
  - Nail hypertrophy [Recovered/Resolved]
  - Sensitive skin [Unknown]
  - Dysstasia [Unknown]
  - Muscle spasms [Recovering/Resolving]
  - Joint dislocation [Unknown]
  - Localised infection [Recovering/Resolving]

NARRATIVE: CASE EVENT DATE: 20211201
